FAERS Safety Report 9843297 (Version 2)
Quarter: 2014Q1

REPORT INFORMATION
  Report Type: Spontaneous
  Country: FR (occurrence: FR)
  Receive Date: 20140125
  Receipt Date: 20140205
  Transmission Date: 20141002
  Serious: Yes (Other)
  Sender: FDA-Public Use
  Company Number: FR-ROCHE-1336759

PATIENT
  Age: 61 Year
  Sex: Male

DRUGS (5)
  1. ZELBORAF [Suspect]
     Indication: METASTATIC MALIGNANT MELANOMA
     Route: 048
     Dates: start: 20140111
  2. HEPARIN [Concomitant]
  3. AMLODIPINE [Concomitant]
     Indication: CARDIAC DISORDER
  4. PREDNISOLONE [Concomitant]
     Dosage: 20 MG
     Route: 048
  5. LYRICA [Concomitant]
     Route: 048
     Dates: start: 20140111

REACTIONS (5)
  - Visual acuity reduced [Not Recovered/Not Resolved]
  - Abdominal pain [Recovering/Resolving]
  - Photosensitivity reaction [Recovering/Resolving]
  - Pyrexia [Recovering/Resolving]
  - Asthenia [Recovered/Resolved]
